FAERS Safety Report 6198066-4 (Version None)
Quarter: 2009Q2

REPORT INFORMATION
  Report Type: 
  Country: None (occurrence: None)
  Receive Date: 20090521
  Receipt Date: 20090512
  Transmission Date: 20091009
  Serious: Yes (Death, Other)
  Sender: FDA-Public Use
  Company Number: FR-ELI_LILLY_AND_COMPANY-FR200905002203

PATIENT

DRUGS (5)
  1. HUMALOG [Suspect]
     Indication: DIABETES MELLITUS
     Dosage: UNK, UNK
     Route: 064
     Dates: start: 20070124
  2. HUMAN INSULIN (RDNA ORIGIN) [Concomitant]
     Route: 064
     Dates: start: 20070403
  3. NEURONTIN [Concomitant]
     Dosage: 800 MG, 2/D
     Route: 064
     Dates: start: 20070124
  4. LANTUS [Concomitant]
     Dosage: UNK, UNK
     Route: 064
     Dates: start: 20070124, end: 20070430
  5. MICROVAL [Concomitant]
     Indication: CONTRACEPTION
     Dosage: 1 D/F, DAILY (1/D)
     Dates: start: 20070124, end: 20070219

REACTIONS (2)
  - DRUG EXPOSURE DURING PREGNANCY [None]
  - INTRA-UTERINE DEATH [None]
